FAERS Safety Report 8779088 (Version 3)
Quarter: 2013Q4

REPORT INFORMATION
  Report Type: Spontaneous
  Country: JP (occurrence: JP)
  Receive Date: 20120912
  Receipt Date: 20131105
  Transmission Date: 20140711
  Serious: Yes (Death, Other)
  Sender: FDA-Public Use
  Company Number: JP-009507513-1112USA01346

PATIENT
  Age: 31 Year
  Sex: Male

DRUGS (7)
  1. ISENTRESS TABLETS 400MG [Suspect]
     Indication: HIV INFECTION
     Route: 048
     Dates: start: 1996
  2. STOCRIN TABLETS 600MG [Suspect]
     Indication: HIV INFECTION
     Route: 048
     Dates: start: 1996
  3. ATAZANAVIR [Suspect]
     Indication: HIV INFECTION
     Dates: start: 1996
  4. STAVUDINE [Suspect]
     Indication: HIV INFECTION
     Dates: start: 1996
  5. LAMIVUDINE [Suspect]
     Indication: HIV INFECTION
     Dates: start: 1996
  6. RITONAVIR [Suspect]
     Indication: HIV INFECTION
     Dates: start: 1996
  7. LOPINAVIR [Suspect]
     Indication: HIV INFECTION
     Dates: start: 1996

REACTIONS (2)
  - Aortic aneurysm rupture [Fatal]
  - Arteriosclerosis [Unknown]
